FAERS Safety Report 16743134 (Version 1)
Quarter: 2019Q3

REPORT INFORMATION
  Report Type: Spontaneous
  Country: US (occurrence: US)
  Receive Date: 20190827
  Receipt Date: 20190827
  Transmission Date: 20191005
  Serious: No
  Sender: FDA-Public Use
  Company Number: US-JNJFOC-20190820750

PATIENT
  Sex: Female
  Weight: 72.64 kg

DRUGS (2)
  1. CLARITIN [Concomitant]
     Active Substance: LORATADINE
     Indication: PRODUCT USED FOR UNKNOWN INDICATION
     Dosage: AS NEEDED
  2. WOMENS ROGAINE UNSCENTED [Suspect]
     Active Substance: MINOXIDIL
     Indication: ALOPECIA
     Dosage: HALF CAPFUL (SLIGHTY MORE THAN HALF CAP THE FIRST TIME AND AFTERWARD CUT BACK ON AMOUNT)
     Route: 061
     Dates: start: 20190718

REACTIONS (5)
  - Headache [Recovered/Resolved]
  - Overdose [Recovered/Resolved]
  - Dizziness [Recovered/Resolved]
  - Alopecia [Recovering/Resolving]
  - Contraindicated product administered [Recovering/Resolving]

NARRATIVE: CASE EVENT DATE: 2019
